FAERS Safety Report 9849225 (Version 2)
Quarter: 2014Q1

REPORT INFORMATION
  Report Type: Spontaneous
  Country: GB (occurrence: GB)
  Receive Date: 20140128
  Receipt Date: 20140213
  Transmission Date: 20141002
  Serious: Yes (Other)
  Sender: FDA-Public Use
  Company Number: PHFR2014GB000911

PATIENT
  Age: 81 Year
  Sex: Male
  Weight: 75.5 kg

DRUGS (3)
  1. DESFERAL [Suspect]
     Indication: MYELOFIBROSIS
     Dosage: 2.5 G, WEEKLY
     Route: 058
     Dates: start: 201011, end: 201312
  2. RAMIPRIL [Concomitant]
     Indication: HYPERTENSION
     Dosage: 2.5 UG, QD
  3. QUININE [Concomitant]
     Indication: MUSCLE SPASMS
     Dosage: 300 UG, NOCTE

REACTIONS (4)
  - Age-related macular degeneration [Not Recovered/Not Resolved]
  - Macular pigmentation [Not Recovered/Not Resolved]
  - Corneal opacity [Unknown]
  - Visual acuity reduced [Unknown]
